FAERS Safety Report 18246593 (Version 2)
Quarter: 2023Q2

REPORT INFORMATION
  Report Type: Report from Study
  Country: BE (occurrence: BE)
  Receive Date: 20200909
  Receipt Date: 20230403
  Transmission Date: 20230721
  Serious: Yes (Hospitalization, Other)
  Sender: FDA-Public Use
  Company Number: BE-ABLYNX NV-ABLYNX-BE000476

PATIENT
  Age: 59 Year
  Sex: Male

DRUGS (11)
  1. CAPLACIZUMAB [Suspect]
     Active Substance: CAPLACIZUMAB
     Indication: Thrombotic thrombocytopenic purpura
     Dosage: 10 MG
     Route: 058
     Dates: start: 20180524, end: 20180809
  2. METHYLPREDNISOLONE [Suspect]
     Active Substance: METHYLPREDNISOLONE
     Indication: Thrombotic thrombocytopenic purpura
     Dosage: 1 MG/KG
     Route: 065
  3. VINCRISTINE [Suspect]
     Active Substance: VINCRISTINE
     Indication: Acute kidney injury
     Dosage: 1.5 MG
  4. VINCRISTINE [Suspect]
     Active Substance: VINCRISTINE
     Indication: Thrombotic thrombocytopenic purpura
  5. RITUXIMAB [Suspect]
     Active Substance: RITUXIMAB
     Indication: Thrombotic thrombocytopenic purpura
     Dosage: 375 MG/M2, DAY 1, 4, 8, 15
     Dates: start: 20180512
  6. PANTOPRAZOLE [Concomitant]
     Active Substance: PANTOPRAZOLE
     Dosage: UNK
  7. LOSARTAN [Concomitant]
     Active Substance: LOSARTAN
     Dosage: UNK
  8. ESCITALOPRAM [Concomitant]
     Active Substance: ESCITALOPRAM OXALATE
     Dosage: UNK
     Route: 065
  9. ATORVASTATIN [Concomitant]
     Active Substance: ATORVASTATIN
     Dosage: UNK
  10. ASPIRIN [Concomitant]
     Active Substance: ASPIRIN
     Indication: Cerebrovascular accident
     Dosage: UNK
  11. SOLU-MEDROL [Concomitant]
     Active Substance: METHYLPREDNISOLONE SODIUM SUCCINATE
     Dosage: 1 MG
     Dates: start: 201805

REACTIONS (5)
  - Deep vein thrombosis [Recovering/Resolving]
  - Rebound effect [Recovering/Resolving]
  - Gastroenteritis salmonella [Unknown]
  - Lymphocytosis [Unknown]
  - Bacteraemia [Unknown]

NARRATIVE: CASE EVENT DATE: 20180101
